FAERS Safety Report 7326765-7 (Version None)
Quarter: 2011Q1

REPORT INFORMATION
  Report Type: 
  Country: None (occurrence: None)
  Receive Date: 20110223
  Receipt Date: 20110210
  Transmission Date: 20110831
  Serious: Yes (Other)
  Sender: FDA-Public Use
  Company Number: 20100481

PATIENT
  Age: 55 Year
  Sex: Female
  Weight: 58.9676 kg

DRUGS (14)
  1. LISINOPRIL [Concomitant]
  2. NEPHRO CAPS [Concomitant]
  3. PROGRAF [Concomitant]
  4. SODIUM BICARBONATE [Concomitant]
  5. PRAVASTATIN [Concomitant]
  6. PREMARIN [Concomitant]
  7. MULTI-VITAMIN [Concomitant]
  8. CELLCEPT [Concomitant]
  9. NIFEDIPINE [Concomitant]
  10. PRILOSEC [Concomitant]
  11. VENOFER [Suspect]
     Indication: ANAEMIA
     Dosage: 400 MG IN 250 ML NS
     Dates: start: 20100305, end: 20100305
  12. OSCAL [Concomitant]
  13. PREDNISONE [Concomitant]
  14. ACYCLOVIR [Concomitant]

REACTIONS (5)
  - NAUSEA [None]
  - FEELING HOT [None]
  - DRUG HYPERSENSITIVITY [None]
  - ROAD TRAFFIC ACCIDENT [None]
  - SYNCOPE [None]
